FAERS Safety Report 9832008 (Version 1)
Quarter: 2014Q1

REPORT INFORMATION
  Report Type: Spontaneous
  Country: US (occurrence: US)
  Receive Date: 20140121
  Receipt Date: 20140121
  Transmission Date: 20141002
  Serious: No
  Sender: FDA-Public Use
  Company Number: US-BAYER-2014-010245

PATIENT
  Age: 75 Year
  Sex: Male
  Weight: 83.9 kg

DRUGS (3)
  1. ALEVE TABLET [Suspect]
     Indication: ARTHRALGIA
     Dosage: 2 DF, QD
     Route: 048
     Dates: start: 20140112
  2. PREDNISONE [Concomitant]
  3. LIPITOR [Concomitant]

REACTIONS (2)
  - Constipation [Recovered/Resolved]
  - Constipation [Not Recovered/Not Resolved]
